FAERS Safety Report 6183591-2 (Version None)
Quarter: 2009Q2

REPORT INFORMATION
  Report Type: 
  Country: None (occurrence: None)
  Receive Date: 20090508
  Receipt Date: 20090430
  Transmission Date: 20091009
  Serious: Yes (Other)
  Sender: FDA-Public Use
  Company Number: DE-PFIZER INC-2009195644

PATIENT
  Age: 62 Year

DRUGS (1)
  1. CELEBREX [Suspect]
     Indication: PAIN IN EXTREMITY
     Dosage: 200 MG, 1X/DAY
     Route: 048
     Dates: start: 20090406, end: 20090406

REACTIONS (5)
  - ARRHYTHMIA [None]
  - DYSPNOEA [None]
  - EYELID OEDEMA [None]
  - PRURITUS [None]
  - URTICARIA [None]
